FAERS Safety Report 8392575 (Version 4)
Quarter: 2012Q4

REPORT INFORMATION
  Report Type: 
  Country: US (occurrence: US)
  Receive Date: 20120206
  Receipt Date: 20121004
  Transmission Date: 20130627
  Serious: Yes (Other)
  Sender: FDA-Public Use
  Company Number: US-PFIZER INC-2012028640

PATIENT
  Age: 31 Year
  Sex: Male
  Weight: 126 kg

DRUGS (7)
  1. EFFEXOR XR [Suspect]
     Dosage: 150 mg, UNK
     Dates: start: 20111101, end: 20121002
  2. GEODON [Suspect]
     Indication: BIPOLAR DISORDER
     Dosage: 80 mg, 1x/day
     Route: 048
     Dates: start: 20120306
  3. EFFEXOR [Suspect]
     Dosage: 150 mg, 2x/day
     Dates: end: 2012
  4. SYNTHROID [Concomitant]
     Indication: BASEDOW^S DISEASE
     Dosage: 200 ug, 1x/day
  5. SUBOXONE [Concomitant]
     Dosage: 8 mg, 1x/day
  6. BYSTOLIC [Concomitant]
     Indication: HYPERTENSION
     Dosage: UNK
  7. XANAX [Concomitant]
     Indication: ANXIETY
     Dosage: 1 mg, as needed

REACTIONS (6)
  - Bipolar disorder [Unknown]
  - Somnolence [Not Recovered/Not Resolved]
  - Malaise [Not Recovered/Not Resolved]
  - Feeling abnormal [Not Recovered/Not Resolved]
  - Fatigue [Not Recovered/Not Resolved]
  - Hypersomnia [Not Recovered/Not Resolved]
